FAERS Safety Report 6807203-7 (Version None)
Quarter: 2010Q2

REPORT INFORMATION
  Report Type: 
  Country: None (occurrence: None)
  Receive Date: 20100628
  Receipt Date: 20100628
  Transmission Date: 20101027
  Serious: Yes (Life-Threatening, Other)
  Sender: FDA-Public Use
  Company Number: None

PATIENT
  Age: 28 Year
  Sex: Female
  Weight: 77.1115 kg

DRUGS (1)
  1. OCELLA 3MG BARR [Suspect]
     Indication: MENSTRUATION IRREGULAR
     Dosage: 3MG DAILY PO
     Route: 048
     Dates: start: 20090501, end: 20100623

REACTIONS (2)
  - DEEP VEIN THROMBOSIS [None]
  - THROMBOSIS [None]
